FAERS Safety Report 6973498-2 (Version None)
Quarter: 2010Q3

REPORT INFORMATION
  Report Type: 
  Country: None (occurrence: None)
  Receive Date: 20100909
  Receipt Date: 20100903
  Transmission Date: 20110219
  Serious: Yes (Other)
  Sender: FDA-Public Use
  Company Number: US-BRISTOL-MYERS SQUIBB COMPANY-15275266

PATIENT
  Sex: Female

DRUGS (3)
  1. ABILIFY [Suspect]
     Dosage: FOR 1 TO 3 DAYS
  2. METFORMIN HCL [Suspect]
  3. RISPERDAL [Suspect]

REACTIONS (4)
  - BLOOD GLUCOSE INCREASED [None]
  - DRY MOUTH [None]
  - POLYURIA [None]
  - THIRST [None]
